FAERS Safety Report 8275237-4 (Version None)
Quarter: 2012Q2

REPORT INFORMATION
  Report Type: 
  Country: None (occurrence: None)
  Receive Date: 20120411
  Receipt Date: 20120401
  Transmission Date: 20120825
  Serious: Yes (Other)
  Sender: FDA-Public Use
  Company Number: BE-FRI-1000029299

PATIENT
  Sex: Female

DRUGS (3)
  1. LEXAPRO [Suspect]
     Dosage: 15 MG
     Route: 048
  2. LEXAPRO [Suspect]
     Indication: DEPRESSION
     Dosage: 10 MG
     Route: 048
     Dates: start: 20100923
  3. LEXAPRO [Suspect]
     Dosage: 20 MG
     Route: 048

REACTIONS (1)
  - EYE HAEMORRHAGE [None]
